FAERS Safety Report 9404142 (Version 1)
Quarter: 2013Q3

REPORT INFORMATION
  Report Type: Spontaneous
  Country: FR (occurrence: FR)
  Receive Date: 20130715
  Receipt Date: 20130715
  Transmission Date: 20140515
  Serious: Yes (Death, Hospitalization)
  Sender: FDA-Public Use
  Company Number: 2013AP006577

PATIENT
  Age: 55 Year
  Sex: Male

DRUGS (4)
  1. MYCOPHENOLATE MOFETIL [Suspect]
     Indication: IMMUNOSUPPRESSION
  2. ANTITHYMOCYTE IMMUNOGLOBULIN [Suspect]
     Indication: IMMUNOSUPPRESSION
  3. TACROLIMUS [Suspect]
     Indication: IMMUNOSUPPRESSION
  4. PREDNISONE [Suspect]
     Indication: IMMUNOSUPPRESSION

REACTIONS (11)
  - Pyrexia [None]
  - Fatigue [None]
  - Abdominal pain [None]
  - Blood alkaline phosphatase increased [None]
  - Brain abscess [None]
  - Brain oedema [None]
  - Pulmonary mass [None]
  - Abdominal distension [None]
  - Coma [None]
  - Intracranial pressure increased [None]
  - No therapeutic response [None]
